FAERS Safety Report 7417939-5 (Version None)
Quarter: 2011Q1

REPORT INFORMATION
  Report Type: 
  Country: None (occurrence: None)
  Receive Date: 20110302
  Receipt Date: 20101221
  Transmission Date: 20110831
  Serious: No
  Sender: FDA-Public Use
  Company Number: 024202

PATIENT
  Sex: Female
  Weight: 58 kg

DRUGS (4)
  1. ENTOCORT EC [Concomitant]
  2. XIFAXAN [Concomitant]
  3. CIMZIA [Suspect]
     Indication: CROHN'S DISEASE
     Dosage: (400 MG 1X/28 DAYS SUBCUTANEOUS)
     Route: 058
     Dates: start: 20100511
  4. ALLEGRA /01314202/ [Concomitant]

REACTIONS (1)
  - ANAL FISSURE [None]
